FAERS Safety Report 10244317 (Version 1)
Quarter: 2014Q2

REPORT INFORMATION
  Report Type: Spontaneous
  Country: US (occurrence: US)
  Receive Date: 20140618
  Receipt Date: 20140618
  Transmission Date: 20141212
  Serious: Yes (Other)
  Sender: FDA-Public Use
  Company Number: US-AMGEN-USASP2014044144

PATIENT
  Sex: Male

DRUGS (3)
  1. XGEVA [Suspect]
     Indication: METASTASES TO BONE
     Dosage: UNK
     Route: 065
     Dates: start: 2013
  2. LUPRON [Concomitant]
     Dosage: UNK
     Dates: start: 2013
  3. CASODEX [Concomitant]
     Dosage: UNK
     Dates: start: 2013

REACTIONS (2)
  - Prostate cancer metastatic [Unknown]
  - Incontinence [Unknown]
